FAERS Safety Report 8942580 (Version 1)
Quarter: 2012Q4

REPORT INFORMATION
  Report Type: 
  Country: US (occurrence: US)
  Receive Date: 20121204
  Receipt Date: 20121204
  Transmission Date: 20130627
  Serious: Yes (Hospitalization)
  Sender: FDA-Public Use
  Company Number: US-VERTEX PHARMACEUTICALS INC.-2012-025449

PATIENT
  Age: 64 Year
  Sex: Male

DRUGS (6)
  1. INCIVEK [Suspect]
     Indication: HEPATITIS C
     Dosage: UNK
     Route: 048
     Dates: start: 20120831, end: 20121025
  2. PEGINTERFERON ALFA-2A [Suspect]
     Indication: HEPATITIS C
     Dosage: UNK
     Dates: start: 20120831
  3. PEGINTERFERON ALFA-2A [Suspect]
     Dosage: Dose reduced
     Dates: end: 20121026
  4. RIBAVIRIN [Suspect]
     Indication: HEPATITIS C
     Dosage: UNK
     Dates: start: 20120831
  5. RIBAVIRIN [Suspect]
     Dosage: Dose reduced
     Dates: end: 20121026
  6. ALLOPURINOL [Suspect]
     Dosage: UNK
     Dates: start: 20120918, end: 20121023

REACTIONS (4)
  - Drug reaction with eosinophilia and systemic symptoms [Recovered/Resolved]
  - Fatigue [Unknown]
  - Diarrhoea [Unknown]
  - Anaemia [Unknown]
